FAERS Safety Report 5275170-6 (Version None)
Quarter: 2007Q1

REPORT INFORMATION
  Report Type: 
  Country: None (occurrence: None)
  Receive Date: 20070320
  Receipt Date: 20070309
  Transmission Date: 20070707
  Serious: Yes (Disabling)
  Sender: FDA-Public Use
  Company Number: 153867ISR

PATIENT
  Age: 47 Year
  Sex: Male

DRUGS (2)
  1. CLARITHROMYCIN [Suspect]
     Indication: INFECTION
     Dosage: 500 MG (500 MG, 1 IN 1 D) ORAL
     Route: 048
     Dates: start: 20060924, end: 20061101
  2. ATORVASTATIN CALCIUM [Suspect]
     Indication: HYPERCHOLESTEROLAEMIA
     Dosage: 40 MG (40 MG, 1 IN 1 D) ORAL
     Route: 048

REACTIONS (3)
  - BACK PAIN [None]
  - MYALGIA [None]
  - SKIN REACTION [None]
